FAERS Safety Report 8576315-2 (Version None)
Quarter: 2012Q3

REPORT INFORMATION
  Report Type: 
  Country: None (occurrence: None)
  Receive Date: 20120807
  Receipt Date: 20120731
  Transmission Date: 20120928
  Serious: Yes (Hospitalization, Disabling, Other)
  Sender: FDA-Public Use
  Company Number: US-009507513-1203USA03377

PATIENT

DRUGS (5)
  1. FOSAMAX [Suspect]
     Dosage: 70 MG, UNK
     Route: 048
     Dates: start: 20060301, end: 20080101
  2. FOSAMAX [Suspect]
     Dosage: 70 MG, UNK
     Route: 048
     Dates: start: 20030101, end: 20050101
  3. FOSAMAX [Suspect]
     Indication: OSTEOPOROSIS
     Dosage: 70 MG, UNK
     Route: 048
     Dates: start: 19950101, end: 20110101
  4. FOSAMAX [Suspect]
     Indication: OSTEOPENIA
     Dosage: 10 MG, UNK
     Route: 048
     Dates: start: 19980917
  5. FOSAMAX [Suspect]
     Dosage: 70 MG, UNK
     Route: 048

REACTIONS (26)
  - ANAEMIA [None]
  - MACULAR DEGENERATION [None]
  - HERPES ZOSTER [None]
  - HYPOTHYROIDISM [None]
  - SPINAL OSTEOARTHRITIS [None]
  - RADIUS FRACTURE [None]
  - NEPHROLITHIASIS [None]
  - LOW TURNOVER OSTEOPATHY [None]
  - HYPERTENSION [None]
  - BODY HEIGHT DECREASED [None]
  - MULTIPLE FRACTURES [None]
  - OSTEOPOROSIS [None]
  - OSTEOARTHRITIS [None]
  - ARTHROPATHY [None]
  - FEMUR FRACTURE [None]
  - STRESS FRACTURE [None]
  - VITREOUS FLOATERS [None]
  - HUMERUS FRACTURE [None]
  - GASTROINTESTINAL DISORDER [None]
  - OVARIAN DISORDER [None]
  - WRIST FRACTURE [None]
  - INTERVERTEBRAL DISC SPACE NARROWING [None]
  - TOOTH DISORDER [None]
  - ORAL DISORDER [None]
  - BLOOD DISORDER [None]
  - SKIN ULCER [None]
